FAERS Safety Report 6117672-6 (Version None)
Quarter: 2009Q1

REPORT INFORMATION
  Report Type: 
  Country: None (occurrence: None)
  Receive Date: 20090314
  Receipt Date: 20090125
  Transmission Date: 20090719
  Serious: No
  Sender: FDA-Public Use
  Company Number: US-ABBOTT-09P-163-0500127-00

PATIENT
  Sex: Male
  Weight: 81.72 kg

DRUGS (3)
  1. HUMIRA [Suspect]
     Indication: ANKYLOSING SPONDYLITIS
     Dates: start: 20090124
  2. OXYCONTIN [Concomitant]
     Indication: PAIN MANAGEMENT
     Route: 048
  3. PERCOCET [Concomitant]
     Indication: PAIN MANAGEMENT
     Route: 048

REACTIONS (2)
  - NAUSEA [None]
  - PRURITUS [None]
